FAERS Safety Report 8443682-X (Version None)
Quarter: 2012Q2

REPORT INFORMATION
  Report Type: 
  Country: None (occurrence: None)
  Receive Date: 20120618
  Receipt Date: 20120605
  Transmission Date: 20120825
  Serious: Yes (Hospitalization, Other)
  Sender: FDA-Public Use
  Company Number: US-JNJFOC-20120603429

PATIENT
  Sex: Male

DRUGS (36)
  1. ASPIRIN [Concomitant]
     Indication: CARDIOVASCULAR EVENT PROPHYLAXIS
     Route: 048
     Dates: start: 20060601
  2. GLUCOPHAGE [Concomitant]
     Indication: DIABETES MELLITUS
     Route: 048
     Dates: start: 19960101
  3. GEMFIBROZIL [Concomitant]
     Indication: BLOOD CHOLESTEROL INCREASED
     Route: 048
     Dates: start: 20090701
  4. IBUPROFEN [Concomitant]
     Indication: BACK PAIN
     Route: 048
     Dates: start: 20100801
  5. DONEPEZIL HCL [Concomitant]
     Indication: AMNESIA
     Route: 048
     Dates: start: 20120125
  6. DIOVAN [Concomitant]
     Indication: HYPERTENSION
     Route: 048
     Dates: start: 19980612
  7. LOVAZA [Concomitant]
     Indication: MEDICAL DIET
     Route: 048
     Dates: start: 20050101
  8. GLIPIZIDE [Concomitant]
     Indication: DIABETES MELLITUS
     Route: 048
     Dates: start: 19980101
  9. ANTIVERT [Concomitant]
     Indication: DIZZINESS
     Route: 048
     Dates: start: 20110318
  10. PREDNISONE [Suspect]
     Indication: PROSTATE CANCER METASTATIC
     Route: 048
     Dates: start: 20090806
  11. TYLENOL PM [Concomitant]
     Indication: INSOMNIA
     Route: 048
     Dates: start: 20020601
  12. NIACIN [Concomitant]
     Indication: HYPERLIPIDAEMIA
     Route: 048
     Dates: start: 20101020
  13. HYDROCODONE [Concomitant]
     Indication: MUSCULOSKELETAL PAIN
     Route: 048
     Dates: start: 20101220
  14. ATENOLOL [Concomitant]
     Indication: HYPERTENSION
     Route: 048
     Dates: start: 20090901
  15. LASIX [Concomitant]
     Indication: OEDEMA PERIPHERAL
     Route: 048
     Dates: start: 20100413
  16. LANTUS [Concomitant]
     Indication: DIABETES MELLITUS
     Route: 058
     Dates: start: 20100615
  17. DOXYLAMINE [Concomitant]
     Indication: INSOMNIA
     Route: 048
     Dates: start: 20110117
  18. MULTI-VITAMINS [Concomitant]
     Indication: MEDICAL DIET
     Route: 048
     Dates: start: 20090904
  19. BENADRYL [Concomitant]
     Indication: INSOMNIA
     Route: 048
     Dates: start: 20100415
  20. NIASPAN [Concomitant]
     Indication: HYPERLIPIDAEMIA
     Route: 048
     Dates: start: 20100616
  21. SIMVASTATIN [Concomitant]
     Indication: HYPERLIPIDAEMIA
     Route: 048
     Dates: start: 20100831
  22. TRILIPIX [Concomitant]
     Indication: HYPERLIPIDAEMIA
     Route: 048
     Dates: start: 20090529
  23. GLUCOTROL [Concomitant]
     Indication: DIABETES MELLITUS
     Route: 048
     Dates: start: 19930612
  24. MULTI-VITAMINS [Concomitant]
     Indication: VITAMIN SUPPLEMENTATION
     Route: 048
     Dates: start: 19980612
  25. SODIUM CHLORIDE [Concomitant]
     Indication: DEHYDRATION
     Route: 042
     Dates: start: 20120507, end: 20120507
  26. REFRESH PLUS [Concomitant]
     Indication: DRY EYE
     Route: 047
     Dates: start: 19990101
  27. IBUPROFEN [Concomitant]
     Route: 048
     Dates: start: 20100801
  28. HYDROCODONE [Concomitant]
     Indication: ARTHRALGIA
     Route: 048
     Dates: start: 20101220
  29. ABIRATERONE ACETATE [Suspect]
     Route: 048
  30. ABIRATERONE ACETATE [Suspect]
     Indication: PROSTATE CANCER METASTATIC
     Route: 048
     Dates: start: 20090806
  31. TRICOR [Concomitant]
     Indication: HYPERLIPIDAEMIA
     Route: 048
     Dates: start: 20090112
  32. ZOMETA [Concomitant]
     Indication: METASTASES TO BONE
     Route: 042
     Dates: start: 20090707
  33. CALCIUM AND VITAMIN D [Concomitant]
     Indication: MEDICAL DIET
     Route: 048
     Dates: start: 20090701
  34. AMBIEN [Concomitant]
     Indication: INSOMNIA
     Route: 048
     Dates: start: 20100927
  35. LORTAB [Concomitant]
     Indication: CANCER PAIN
     Route: 048
     Dates: start: 20101220
  36. CLARITIN-D [Concomitant]
     Indication: PRODUCTIVE COUGH
     Route: 048
     Dates: start: 20110308

REACTIONS (1)
  - AGITATION [None]
